FAERS Safety Report 21618134 (Version 2)
Quarter: 2024Q2

REPORT INFORMATION
  Report Type: Report from Study
  Country: HN (occurrence: HN)
  Receive Date: 20221119
  Receipt Date: 20240426
  Transmission Date: 20240715
  Serious: Yes (Life-Threatening, Hospitalization, Disabling, Other)
  Sender: FDA-Public Use
  Company Number: HN-002147023-NVSC2022HN259464

PATIENT
  Sex: Female

DRUGS (1)
  1. EXFORGE HCT [Suspect]
     Active Substance: AMLODIPINE BESYLATE\HYDROCHLOROTHIAZIDE\VALSARTAN
     Indication: Hypertension
     Dosage: 190 MG, QD
     Route: 048
     Dates: start: 2014

REACTIONS (7)
  - Osteoporosis [Not Recovered/Not Resolved]
  - Asphyxia [Unknown]
  - Pulmonary oedema [Unknown]
  - Fall [Recovered/Resolved]
  - Weight increased [Recovered/Resolved]
  - Spinal fracture [Not Recovered/Not Resolved]
  - Dysstasia [Unknown]

NARRATIVE: CASE EVENT DATE: 20190101
